FAERS Safety Report 8968951 (Version 1)
Quarter: 2012Q4

REPORT INFORMATION
  Report Type: 
  Country: US (occurrence: US)
  Receive Date: 20121218
  Receipt Date: 20121218
  Transmission Date: 20130627
  Serious: No
  Sender: FDA-Public Use
  Company Number: US-BRISTOL-MYERS SQUIBB COMPANY-16689325

PATIENT
  Sex: Female

DRUGS (4)
  1. ABILIFY [Suspect]
     Dosage: 12-15 years ago
  2. CELEXA [Concomitant]
  3. LISINOPRIL [Concomitant]
  4. HYDROCHLOROTHIAZIDE [Concomitant]

REACTIONS (7)
  - Syncope [None]
  - Joint stiffness [Unknown]
  - Myalgia [Unknown]
  - Muscle spasms [Unknown]
  - Urine output increased [Unknown]
  - Dyspnoea [Unknown]
  - Gait disturbance [Unknown]
